FAERS Safety Report 18163316 (Version 1)
Quarter: 2020Q3

REPORT INFORMATION
  Report Type: Not Available
  Country: GB (occurrence: GB)
  Receive Date: 20200818
  Receipt Date: 20200818
  Transmission Date: 20201103
  Serious: Yes (Death)
  Sender: FDA-Public Use
  Company Number: GB-LEXICON PHARMACEUTICALS, INC-20-1606-00652

PATIENT

DRUGS (1)
  1. XERMELO [Suspect]
     Active Substance: TELOTRISTAT ETHYL
     Indication: CARCINOID SYNDROME
     Dosage: 1 TABLET 250 MG OD/PRN RARELY TAKES
     Route: 065
     Dates: start: 201906, end: 20200527

REACTIONS (2)
  - Treatment noncompliance [Unknown]
  - Neoplasm malignant [Fatal]
